FAERS Safety Report 5590349-1 (Version None)
Quarter: 2007Q4

REPORT INFORMATION
  Report Type: 
  Country: None (occurrence: None)
  Receive Date: 20071214
  Receipt Date: 20071008
  Transmission Date: 20080405
  Serious: Yes (Other)
  Sender: FDA-Public Use
  Company Number: 2007085235

PATIENT
  Age: 39 Year
  Sex: Female

DRUGS (9)
  1. XANAX [Suspect]
     Indication: ANXIETY
     Dosage: 0.75 MG (0.25 MG,3 IN 1 D),ORAL
     Route: 048
     Dates: start: 20070801, end: 20070822
  2. KLONOPIN [Suspect]
     Indication: ANXIETY
     Dosage: 1 MG (0.5 MG,2 IN 1 D),ORAL
     Route: 048
     Dates: start: 20070823, end: 20070827
  3. XYREM [Suspect]
     Indication: FIBROMYALGIA
     Dosage: 12 GRAM (6 GRAM,2 IN 1 D),ORAL ; 6 GRAM (3 GRAM,2 IN 1 D),ORAL
     Route: 048
     Dates: start: 20070301, end: 20070101
  4. XYREM [Suspect]
     Indication: FIBROMYALGIA
     Dosage: 12 GRAM (6 GRAM,2 IN 1 D),ORAL ; 6 GRAM (3 GRAM,2 IN 1 D),ORAL
     Route: 048
     Dates: start: 20070101
  5. CELEXA [Suspect]
     Indication: ANXIETY
     Dosage: 10 MG (10 MG,1 IN 1 D),ORAL ; 10 MG (10 MG,1 IN 1 D),ORAL
     Route: 048
     Dates: start: 20070827, end: 20070827
  6. CELEXA [Suspect]
     Indication: ANXIETY
     Dosage: 10 MG (10 MG,1 IN 1 D),ORAL ; 10 MG (10 MG,1 IN 1 D),ORAL
     Route: 048
     Dates: start: 20070801
  7. LYRICA [Concomitant]
  8. PREMARIN [Concomitant]
  9. BENICAR [Concomitant]

REACTIONS (8)
  - ANXIETY [None]
  - CHEST DISCOMFORT [None]
  - CONFUSIONAL STATE [None]
  - DIARRHOEA [None]
  - DRUG INEFFECTIVE [None]
  - HALLUCINATION [None]
  - NAUSEA [None]
  - SOMNOLENCE [None]
